FAERS Safety Report 25090799 (Version 1)
Quarter: 2025Q1

REPORT INFORMATION
  Report Type: Spontaneous
  Country: GR (occurrence: GR)
  Receive Date: 20250318
  Receipt Date: 20250318
  Transmission Date: 20250409
  Serious: Yes (Other)
  Sender: PFIZER
  Company Number: GR-PFIZER INC-PV202500032265

PATIENT
  Age: 13 Year
  Sex: Female
  Weight: 50 kg

DRUGS (1)
  1. NGENLA [Suspect]
     Active Substance: SOMATROGON-GHLA
     Indication: Growth hormone deficiency
     Dosage: 27 MG, WEEKLY
     Route: 058
     Dates: start: 202412, end: 202412

REACTIONS (3)
  - Weight increased [Not Recovered/Not Resolved]
  - Abdominal distension [Unknown]
  - Increased appetite [Unknown]

NARRATIVE: CASE EVENT DATE: 20241201
